FAERS Safety Report 18938242 (Version 1)
Quarter: 2021Q1

REPORT INFORMATION
  Report Type: Spontaneous
  Country: US (occurrence: US)
  Receive Date: 20210224
  Receipt Date: 20210224
  Transmission Date: 20210420
  Serious: No
  Sender: FDA-Public Use
  Company Number: US-GALDERMA-US2020036599

PATIENT
  Age: 15 Year
  Sex: Male

DRUGS (5)
  1. PROACTIV AMAZONIAN CLAY MASK [Concomitant]
     Indication: ACNE CYSTIC
     Route: 061
     Dates: start: 20200117, end: 20200630
  2. PROACTIV MD ADAPALENE ACNE TREATMENT [Suspect]
     Active Substance: ADAPALENE
     Indication: ACNE CYSTIC
     Dosage: 0.1%
     Route: 061
     Dates: start: 20200117, end: 20200630
  3. PROACTIV MD DAILY OIL CONTROL SPF 30 [Suspect]
     Active Substance: AVOBENZONE\OCTISALATE\OCTOCRYLENE
     Indication: ACNE CYSTIC
     Route: 061
     Dates: start: 20200117, end: 20200630
  4. PROACTIV T?ZONE OIL ABSORBER [Concomitant]
     Indication: ACNE CYSTIC
     Route: 061
     Dates: start: 20200117, end: 20200630
  5. PROACTIV MD DEEP CLEANSING FACE WASH [Concomitant]
     Active Substance: COSMETICS
     Indication: ACNE CYSTIC
     Route: 061
     Dates: start: 20200117, end: 20200630

REACTIONS (2)
  - Acne cystic [Recovered/Resolved]
  - Condition aggravated [Recovered/Resolved]

NARRATIVE: CASE EVENT DATE: 20200207
